FAERS Safety Report 25613595 (Version 2)
Quarter: 2025Q3

REPORT INFORMATION
  Report Type: Spontaneous
  Country: US (occurrence: US)
  Receive Date: 20250728
  Receipt Date: 20250729
  Transmission Date: 20251020
  Serious: No
  Sender: PFIZER
  Company Number: US-PFIZER INC-202500150682

PATIENT
  Age: 74 Year
  Sex: Female
  Weight: 70.306 kg

DRUGS (1)
  1. BRAFTOVI [Suspect]
     Active Substance: ENCORAFENIB
     Dosage: 300 MG, 1X/DAY (4 TABLETS BY MOUTH ONCE DAILY)
     Route: 048
     Dates: start: 20250716

REACTIONS (5)
  - Blood alkaline phosphatase increased [Unknown]
  - Aspartate aminotransferase increased [Unknown]
  - Mean cell haemoglobin decreased [Unknown]
  - Red cell distribution width increased [Unknown]
  - Anion gap decreased [Unknown]

NARRATIVE: CASE EVENT DATE: 20250721
